FAERS Safety Report 5947506-1 (Version None)
Quarter: 2008Q4

REPORT INFORMATION
  Report Type: 
  Country: None (occurrence: None)
  Receive Date: 20081110
  Receipt Date: 20081031
  Transmission Date: 20090506
  Serious: Yes (Life-Threatening, Hospitalization, Other)
  Sender: FDA-Public Use
  Company Number: JP-ABBOTT-08P-087-0481206-00

PATIENT
  Sex: Female

DRUGS (1)
  1. LEUPLIN FOR INJECTION KIT 1.88 MG [Suspect]
     Indication: UTERINE LEIOMYOMA
     Route: 058
     Dates: start: 20080804, end: 20080903

REACTIONS (6)
  - ANOREXIA [None]
  - DEPRESSION [None]
  - DRUG EFFECT DECREASED [None]
  - LOSS OF CONSCIOUSNESS [None]
  - MENOPAUSAL SYMPTOMS [None]
  - SUICIDE ATTEMPT [None]
